FAERS Safety Report 6709789-X (Version None)
Quarter: 2010Q2

REPORT INFORMATION
  Report Type: 
  Country: None (occurrence: None)
  Receive Date: 20100503
  Receipt Date: 20100503
  Transmission Date: 20101027
  Serious: No
  Sender: FDA-Public Use
  Company Number: None

PATIENT
  Age: 4 Year
  Sex: Male
  Weight: 28.5766 kg

DRUGS (1)
  1. ZYRTEC [Suspect]
     Indication: HYPERSENSITIVITY
     Dosage: 1 TEASPOON 1 IN THE EVE PO
     Route: 048
     Dates: start: 20100328, end: 20100415

REACTIONS (3)
  - ABNORMAL BEHAVIOUR [None]
  - FEELING DRUNK [None]
  - SOMNOLENCE [None]
